FAERS Safety Report 20748006 (Version 3)
Quarter: 2022Q2

REPORT INFORMATION
  Report Type: Report from Study
  Country: US (occurrence: US)
  Receive Date: 20220425
  Receipt Date: 20220429
  Transmission Date: 20220720
  Serious: Yes (Death)
  Sender: FDA-Public Use
  Company Number: US-ABBVIE-22K-163-4370339-00

PATIENT
  Sex: Male

DRUGS (3)
  1. VENCLEXTA [Suspect]
     Active Substance: VENETOCLAX
     Indication: Haemorrhage in pregnancy
     Dosage: DAY 1
     Route: 048
  2. VENCLEXTA [Suspect]
     Active Substance: VENETOCLAX
     Dosage: DAY 2?TAKE 2 TABLETS
     Route: 048
  3. VENCLEXTA [Suspect]
     Active Substance: VENETOCLAX
     Dosage: DAY 2?TAKE 4 TABLETS?DAY 3 TO 14 AND THEN 14 DAYS OFF
     Route: 048

REACTIONS (2)
  - Death [Fatal]
  - Off label use [Unknown]
